FAERS Safety Report 17028547 (Version 2)
Quarter: 2019Q4

REPORT INFORMATION
  Report Type: Spontaneous
  Country: BR (occurrence: BR)
  Receive Date: 20191113
  Receipt Date: 20191231
  Transmission Date: 20200122
  Serious: Yes (Other)
  Sender: FDA-Public Use
  Company Number: BR-AMGEN-BRASP2019187951

PATIENT
  Age: 58 Year
  Sex: Male

DRUGS (1)
  1. ENBREL [Suspect]
     Active Substance: ETANERCEPT
     Indication: PRODUCT USED FOR UNKNOWN INDICATION
     Dosage: UNK
     Route: 065
     Dates: start: 2009, end: 201908

REACTIONS (9)
  - Finger deformity [Unknown]
  - Psoriatic arthropathy [Unknown]
  - Hand deformity [Unknown]
  - Nuchal rigidity [Unknown]
  - Arthropathy [Unknown]
  - Screaming [Unknown]
  - Foot deformity [Unknown]
  - Spinal deformity [Unknown]
  - Pain [Unknown]
